FAERS Safety Report 8532393-8 (Version None)
Quarter: 2012Q3

REPORT INFORMATION
  Report Type: 
  Country: None (occurrence: None)
  Receive Date: 20120724
  Receipt Date: 20120717
  Transmission Date: 20120928
  Serious: No
  Sender: FDA-Public Use
  Company Number: US-BIOGENIDEC-2012BI026243

PATIENT
  Age: 53 Year
  Sex: Female

DRUGS (2)
  1. TYSABRI [Suspect]
     Indication: MULTIPLE SCLEROSIS
     Route: 042
     Dates: start: 20111219, end: 20120501
  2. BENADRYL [Concomitant]
     Indication: PREMEDICATION
     Dates: start: 20120301, end: 20120501

REACTIONS (5)
  - GAIT DISTURBANCE [None]
  - NAUSEA [None]
  - PYREXIA [None]
  - BLOOD PRESSURE DECREASED [None]
  - DRUG SPECIFIC ANTIBODY PRESENT [None]
